FAERS Safety Report 7296274-2 (Version None)
Quarter: 2011Q1

REPORT INFORMATION
  Report Type: 
  Country: None (occurrence: None)
  Receive Date: 20110216
  Receipt Date: 20110210
  Transmission Date: 20110831
  Serious: Yes (Death, Other)
  Sender: FDA-Public Use
  Company Number: IL-CELGENEUS-082-C5013-10110403

PATIENT
  Sex: Male
  Weight: 89.3 kg

DRUGS (34)
  1. CC-5013 [Suspect]
     Route: 048
     Dates: start: 20080806, end: 20090203
  2. PREDNISONE TAB [Suspect]
     Route: 048
     Dates: end: 20081022
  3. WHOLE BLOOD [Concomitant]
     Route: 051
     Dates: start: 20091224, end: 20091224
  4. RECORMON [Concomitant]
     Route: 065
  5. MELPHALAN [Suspect]
     Route: 048
     Dates: start: 20071227
  6. WHOLE BLOOD [Concomitant]
     Route: 051
     Dates: start: 20091206, end: 20091207
  7. WHOLE BLOOD [Concomitant]
     Dosage: 2 UNITS
     Route: 051
     Dates: start: 20100301, end: 20100301
  8. LOSARTAN POTASSIUM [Concomitant]
     Route: 065
  9. FUROSEMIDE [Concomitant]
     Route: 065
  10. DOPAMINE [Concomitant]
     Route: 065
     Dates: start: 20100301
  11. MELPHALAN [Suspect]
     Route: 048
     Dates: end: 20081022
  12. WHOLE BLOOD [Concomitant]
     Route: 051
     Dates: start: 20100304, end: 20100304
  13. NEUPOGEN [Concomitant]
     Indication: NEUTROPENIA
  14. NEUPOGEN [Concomitant]
     Indication: NEUTROPENIA
     Route: 065
     Dates: start: 20080117, end: 20090217
  15. CC-5013 [Suspect]
     Route: 048
     Dates: start: 20071227, end: 20080623
  16. WHOLE BLOOD [Concomitant]
     Route: 051
     Dates: start: 20100207, end: 20100207
  17. WHOLE BLOOD [Concomitant]
     Dosage: 2 UNITS
     Route: 051
     Dates: start: 20100214, end: 20100214
  18. WHOLE BLOOD [Concomitant]
     Route: 051
     Dates: start: 20100223, end: 20100223
  19. GASTRO [Concomitant]
     Route: 065
  20. WHOLE BLOOD [Concomitant]
     Route: 051
     Dates: start: 20100106, end: 20100106
  21. OXYGEN [Concomitant]
     Route: 065
  22. REVLIMID [Suspect]
     Route: 065
  23. NEUPOGEN [Concomitant]
     Indication: PANCYTOPENIA
     Route: 051
     Dates: start: 20070801
  24. PREDNISONE TAB [Suspect]
     Route: 048
     Dates: start: 20071227
  25. EPOETIN BETA [Concomitant]
     Indication: ANAEMIA
     Route: 065
     Dates: start: 20080326, end: 20100319
  26. WHOLE BLOOD [Concomitant]
     Route: 051
     Dates: start: 20090331, end: 20090331
  27. WHOLE BLOOD [Concomitant]
     Dosage: 2 UNITS
     Route: 051
     Dates: start: 20100126, end: 20100126
  28. WHOLE BLOOD [Concomitant]
     Route: 051
     Dates: start: 20100218, end: 20100218
  29. SPIRONOLACTONE [Concomitant]
     Route: 065
  30. SIMVASTATIN [Concomitant]
     Route: 065
  31. ZAROXOLYN [Concomitant]
     Route: 065
  32. DOPAMINE [Concomitant]
  33. WHOLE BLOOD [Concomitant]
     Indication: PANCYTOPENIA
     Route: 051
     Dates: start: 20090128, end: 20090128
  34. WHOLE BLOOD [Concomitant]
     Dosage: 2 UNITS
     Route: 051
     Dates: start: 20100121, end: 20100121

REACTIONS (2)
  - MYOCARDIAL ISCHAEMIA [None]
  - ACUTE MYELOID LEUKAEMIA [None]
